FAERS Safety Report 4286466-9 (Version None)
Quarter: 2004Q1

REPORT INFORMATION
  Report Type: 
  Country: None (occurrence: None)
  Receive Date: 20040205
  Receipt Date: 20040205
  Transmission Date: 20041129
  Serious: Yes (Other)
  Sender: FDA-Public Use
  Company Number: None

PATIENT
  Age: 43 Year
  Sex: Male
  Weight: 93.7 kg

DRUGS (11)
  1. CIPROFLOXACIN [Suspect]
     Indication: EXPOSURE TO COMMUNICABLE DISEASE
     Dosage: 500 MG PO X 1
     Route: 048
  2. COMBIVIR [Concomitant]
  3. KALETRA [Concomitant]
  4. TENOFOVIR [Concomitant]
  5. TRIMETHOPRIM + SULFAMETHOXAZOLE [Concomitant]
  6. NITROGLYCERIN [Concomitant]
  7. CLOPIDOGREL BISULFATE [Concomitant]
  8. METOPROLOL [Concomitant]
  9. PRAVASTATIN [Concomitant]
  10. ASPIRIN [Concomitant]
  11. VALGANCICLOVIR [Concomitant]

REACTIONS (1)
  - URTICARIA [None]
